FAERS Safety Report 10738840 (Version 1)
Quarter: 2015Q1

REPORT INFORMATION
  Report Type: Spontaneous
  Country: GB (occurrence: GB)
  Receive Date: 20150126
  Receipt Date: 20150126
  Transmission Date: 20150721
  Serious: Yes (Disabling, Other)
  Sender: FDA-Public Use
  Company Number: GB-PFIZER INC-2015027382

PATIENT
  Age: 32 Year
  Sex: Female

DRUGS (2)
  1. CLINDAMYCIN PHOSPHATE. [Suspect]
     Active Substance: CLINDAMYCIN PHOSPHATE
     Dosage: UNK
     Route: 061
  2. ACETAZOLAMIDE. [Concomitant]
     Active Substance: ACETAZOLAMIDE
     Route: 048

REACTIONS (2)
  - Condition aggravated [Not Recovered/Not Resolved]
  - Intracranial pressure increased [Not Recovered/Not Resolved]
